FAERS Safety Report 21193847 (Version 1)
Quarter: 2022Q3

REPORT INFORMATION
  Report Type: Spontaneous
  Country: US (occurrence: US)
  Receive Date: 20220810
  Receipt Date: 20220810
  Transmission Date: 20221027
  Serious: Yes (Other)
  Sender: FDA-Public Use
  Company Number: US-SPECGX-T202201705

PATIENT

DRUGS (2)
  1. ACETAMINOPHEN AND CODEINE [Suspect]
     Active Substance: ACETAMINOPHEN\CODEINE PHOSPHATE
     Indication: Postoperative analgesia
     Dosage: 0.5 MG/KG
     Route: 048
  2. ACETAMINOPHEN\HYDROCODONE [Suspect]
     Active Substance: ACETAMINOPHEN\HYDROCODONE
     Indication: Postoperative analgesia
     Dosage: 0.1 MG/KG
     Route: 048

REACTIONS (1)
  - Transfusion [Unknown]
